FAERS Safety Report 23362919 (Version 2)
Quarter: 2024Q1

REPORT INFORMATION
  Report Type: Spontaneous
  Country: FR (occurrence: FR)
  Receive Date: 20240103
  Receipt Date: 20240325
  Transmission Date: 20240409
  Serious: Yes (Hospitalization)
  Sender: FDA-Public Use
  Company Number: None

PATIENT
  Age: 63 Year
  Sex: Male
  Weight: 118.5 kg

DRUGS (7)
  1. SODIUM CHLORIDE [Suspect]
     Active Substance: SODIUM CHLORIDE
     Indication: Fluid replacement
     Dosage: ROUTE OF ADMIN: INTRAVENOUS (NOT OTHERWISE SPECIFIED) (INT)
     Dates: start: 20231019, end: 20231019
  2. POTASSIUM CHLORIDE [Suspect]
     Active Substance: POTASSIUM CHLORIDE
     Indication: Hypokalaemia
     Route: 042
     Dates: start: 20231019, end: 20231019
  3. MAGNESIUM SULFATE [Suspect]
     Active Substance: MAGNESIUM SULFATE\MAGNESIUM SULFATE HEPTAHYDRATE
     Indication: Mineral supplementation
     Route: 042
     Dates: start: 20231019, end: 20231019
  4. NICOTINAMIDE [Suspect]
     Active Substance: NIACINAMIDE
     Indication: Vitamin supplementation
     Dosage: ROUTE OF ADMIN: INTRAVENOUS
     Route: 042
     Dates: start: 20231019, end: 20231019
  5. THIAMINE [Suspect]
     Active Substance: THIAMINE
     Indication: Vitamin supplementation
     Dosage: ROUTE OF ADMIN: INTRAVENOUS
     Route: 042
     Dates: start: 20231019, end: 20231019
  6. PYRIDOXINE [Suspect]
     Active Substance: PYRIDOXINE
     Indication: Vitamin supplementation
     Dosage: ROUTE OF ADMIN: INTRAVENOUS
     Route: 042
     Dates: start: 20231019, end: 20231019
  7. CALCIUM CHLORIDE [Suspect]
     Active Substance: CALCIUM CHLORIDE
     Indication: Hypocalcaemia
     Route: 042
     Dates: start: 20231019, end: 20231019

REACTIONS (3)
  - Drug interaction [Recovered/Resolved]
  - Injection site extravasation [Recovered/Resolved]
  - Injection site necrosis [Recovered/Resolved]

NARRATIVE: CASE EVENT DATE: 20231019
